FAERS Safety Report 5831585-6 (Version None)
Quarter: 2008Q3

REPORT INFORMATION
  Report Type: 
  Country: None (occurrence: None)
  Receive Date: 20080801
  Receipt Date: 20080724
  Transmission Date: 20090109
  Serious: Yes (Other)
  Sender: FDA-Public Use
  Company Number: PR-PFIZER INC-2008061799

PATIENT

DRUGS (1)
  1. CELEBREX [Suspect]

REACTIONS (1)
  - DEEP VEIN THROMBOSIS [None]
